FAERS Safety Report 9252751 (Version 2)
Quarter: 2013Q3

REPORT INFORMATION
  Report Type: Report from Study
  Country: DE (occurrence: DE)
  Receive Date: 20130424
  Receipt Date: 20130719
  Transmission Date: 20140515
  Serious: Yes (Hospitalization, Other)
  Sender: FDA-Public Use
  Company Number: DE-ABBOTT-13P-062-1079800-00

PATIENT
  Age: 25 Year
  Sex: Female
  Weight: 68 kg

DRUGS (1)
  1. HUMIRA [Suspect]
     Indication: CROHN^S DISEASE
     Route: 058
     Dates: start: 20111220, end: 20130215

REACTIONS (4)
  - Subileus [Recovered/Resolved]
  - Intestinal stenosis [Recovered/Resolved]
  - No therapeutic response [Unknown]
  - Crohn^s disease [Unknown]
